FAERS Safety Report 20572447 (Version 1)
Quarter: 2022Q1

REPORT INFORMATION
  Report Type: Spontaneous
  Country: IN (occurrence: IN)
  Receive Date: 20220309
  Receipt Date: 20220309
  Transmission Date: 20220424
  Serious: Yes (Other)
  Sender: FDA-Public Use
  Company Number: IN-PFIZER INC-2020484106

PATIENT
  Age: 57 Year
  Sex: Female

DRUGS (4)
  1. PALBOCICLIB [Suspect]
     Active Substance: PALBOCICLIB
     Indication: Breast cancer metastatic
     Dosage: 125 MG, 1X/DAY (DAY 1-21)
     Route: 048
     Dates: start: 20190717
  2. LETROZOLE [Concomitant]
     Active Substance: LETROZOLE
     Dosage: 2.5 MG, 1X/DAY
  3. ZOLEDRONIC ACID [Concomitant]
     Active Substance: ZOLEDRONIC ACID
     Dosage: 4 MG
  4. DENOSUMAB [Concomitant]
     Active Substance: DENOSUMAB
     Dosage: 120 MG, MONTHLY
     Route: 058

REACTIONS (13)
  - Numb chin syndrome [Unknown]
  - Fatigue [Unknown]
  - Full blood count abnormal [Unknown]
  - Gastric disorder [Unknown]
  - Diarrhoea [Unknown]
  - Bone pain [Unknown]
  - Gastroenteritis [Unknown]
  - Pain [Unknown]
  - Back pain [Unknown]
  - Pallor [Unknown]
  - Oedema [Unknown]
  - Koilonychia [Unknown]
  - COVID-19 [Recovered/Resolved]

NARRATIVE: CASE EVENT DATE: 20210101
